FAERS Safety Report 24994505 (Version 1)
Quarter: 2025Q1

REPORT INFORMATION
  Report Type: Spontaneous
  Country: US (occurrence: None)
  Receive Date: 20250220
  Receipt Date: 20250220
  Transmission Date: 20250409
  Serious: Yes (Disabling)
  Sender: FDA-CTU
  Company Number: None

PATIENT
  Age: 69 Year
  Weight: 85.5 kg

DRUGS (2)
  1. .DELTA.9-TETRAHYDROCANNABINOL\CANNABIDIOL\HERBALS [Suspect]
     Active Substance: .DELTA.9-TETRAHYDROCANNABINOL\CANNABIDIOL\HERBALS
     Indication: Substance use
     Route: 048
     Dates: start: 20241103, end: 20241103
  2. multi-vitamins [Concomitant]

REACTIONS (7)
  - Self-medication [None]
  - Feeling hot [None]
  - Skin burning sensation [None]
  - Pruritus [None]
  - Tremor [None]
  - Dysarthria [None]
  - Erythema [None]

NARRATIVE: CASE EVENT DATE: 20241103
